FAERS Safety Report 10177247 (Version 5)
Quarter: 2014Q3

REPORT INFORMATION
  Report Type: Spontaneous
  Country: US (occurrence: US)
  Receive Date: 20140516
  Receipt Date: 20140814
  Transmission Date: 20150326
  Serious: Yes (Other)
  Sender: FDA-Public Use
  Company Number: US-GLAXOSMITHKLINE-A1072812A

PATIENT
  Age: 83 Year
  Sex: Female

DRUGS (4)
  1. PROMETHAZINE SYRUP [Concomitant]
  2. CALTRATE [Concomitant]
     Active Substance: CALCIUM CARBONATE
  3. MUCINEX [Concomitant]
     Active Substance: GUAIFENESIN
  4. VOTRIENT [Suspect]
     Active Substance: PAZOPANIB HYDROCHLORIDE
     Indication: THYROID CANCER
     Dosage: 800MG PER DAY
     Route: 048
     Dates: start: 20140410

REACTIONS (4)
  - Drug dose omission [Unknown]
  - Pneumonia [Recovered/Resolved]
  - Peripheral swelling [Recovered/Resolved]
  - Diarrhoea [Recovered/Resolved]

NARRATIVE: CASE EVENT DATE: 2014
